FAERS Safety Report 12889752 (Version 1)
Quarter: 2016Q4

REPORT INFORMATION
  Report Type: Spontaneous
  Country: BR (occurrence: BR)
  Receive Date: 20161027
  Receipt Date: 20161027
  Transmission Date: 20170207
  Serious: Yes (Other)
  Sender: FDA-Public Use
  Company Number: BR-MYLANLABS-2016M1046180

PATIENT

DRUGS (1)
  1. PROPRANOLOL [Suspect]
     Active Substance: PROPRANOLOL\PROPRANOLOL HYDROCHLORIDE
     Indication: PROPHYLAXIS
     Dosage: 1MG/KG/DAY, Q8HR, AND TITRATED TO REDUCE THE BASAL HR BY 25%,NOT EXCEEDING 5MG/KG/DAY OR 320MG/DAY
     Route: 065

REACTIONS (2)
  - Hypotension [Unknown]
  - Seizure [Unknown]
